FAERS Safety Report 9862066 (Version 1)
Quarter: 2014Q1

REPORT INFORMATION
  Report Type: Spontaneous
  Country: US (occurrence: US)
  Receive Date: 20140203
  Receipt Date: 20140203
  Transmission Date: 20141002
  Serious: No
  Sender: FDA-Public Use
  Company Number: US-009507513-1402USA000331

PATIENT
  Sex: Male

DRUGS (1)
  1. JANUMET [Suspect]
     Route: 048

REACTIONS (2)
  - Renal function test abnormal [Unknown]
  - Nephropathy [Unknown]
